FAERS Safety Report 23353726 (Version 4)
Quarter: 2024Q2

REPORT INFORMATION
  Report Type: Spontaneous
  Country: US (occurrence: US)
  Receive Date: 20240101
  Receipt Date: 20240604
  Transmission Date: 20240716
  Serious: Yes (Life-Threatening, Disabling, Other)
  Sender: FDA-Public Use
  Company Number: US-PURDUE-USA-2023-0305037

PATIENT
  Age: 59 Year
  Sex: Female
  Weight: 72.57 kg

DRUGS (7)
  1. ACETAMINOPHEN\OXYCODONE HYDROCHLORIDE [Suspect]
     Active Substance: ACETAMINOPHEN\OXYCODONE HYDROCHLORIDE
     Indication: Pain management
     Dosage: 10/325MG, BID
     Route: 048
  2. ACETAMINOPHEN\OXYCODONE HYDROCHLORIDE [Suspect]
     Active Substance: ACETAMINOPHEN\OXYCODONE HYDROCHLORIDE
     Indication: Pain
     Dosage: 5/325, 45 TABLETS 15 DAY SUPPLY
     Route: 048
  3. ACETAMINOPHEN\OXYCODONE HYDROCHLORIDE [Suspect]
     Active Substance: ACETAMINOPHEN\OXYCODONE HYDROCHLORIDE
     Dosage: 5/325MG, (21 TABLETS AVAILABLE)
     Route: 048
  4. ACETAMINOPHEN\OXYCODONE HYDROCHLORIDE [Suspect]
     Active Substance: ACETAMINOPHEN\OXYCODONE HYDROCHLORIDE
     Dosage: 10 MILLIGRAM, TID
     Route: 048
     Dates: start: 20240404, end: 20240414
  5. METOPROLOL [Concomitant]
     Active Substance: METOPROLOL
     Indication: Hypertension
     Dosage: ONCE DAILY
     Route: 065
  6. XTAMPZA ER [Concomitant]
     Active Substance: OXYCODONE
     Indication: Pain
     Dosage: TWICE A DAY
     Route: 065
  7. CLONAZEPAM [Concomitant]
     Active Substance: CLONAZEPAM
     Indication: Product used for unknown indication
     Dosage: UNK
     Route: 065

REACTIONS (13)
  - Metal poisoning [Not Recovered/Not Resolved]
  - Oropharyngeal pain [Not Recovered/Not Resolved]
  - Nasal discomfort [Unknown]
  - Impaired driving ability [Unknown]
  - Anxiety [Unknown]
  - Dyspepsia [Not Recovered/Not Resolved]
  - Somnolence [Unknown]
  - Fatigue [Unknown]
  - Abdominal pain [Unknown]
  - Malaise [Unknown]
  - Product quality issue [Unknown]
  - Suspected product contamination [Unknown]
  - Product physical issue [Unknown]

NARRATIVE: CASE EVENT DATE: 20240402
